FAERS Safety Report 8891923 (Version 1)
Quarter: 2012Q4

REPORT INFORMATION
  Report Type: 
  Country: US (occurrence: None)
  Receive Date: 20121105
  Receipt Date: 20121105
  Transmission Date: 20130627
  Serious: Yes (Hospitalization)
  Sender: FDA-Public Use
  Company Number: None

PATIENT
  Sex: Male
  Weight: 71.6 kg

DRUGS (6)
  1. ALFA 2 INTERFERON 2B (INTRON-A) [Suspect]
     Dosage: 41.2 mU
     Dates: end: 20111223
  2. COMPAZINE [Concomitant]
  3. KYTRIL [Concomitant]
  4. MIRRALAX [Concomitant]
  5. TYLENOL [Concomitant]
  6. ZOFRAN [Concomitant]

REACTIONS (1)
  - Alanine aminotransferase increased [None]
